FAERS Safety Report 23708687 (Version 3)
Quarter: 2024Q2

REPORT INFORMATION
  Report Type: Spontaneous
  Country: US (occurrence: US)
  Receive Date: 20240404
  Receipt Date: 20240605
  Transmission Date: 20240717
  Serious: No
  Sender: FDA-Public Use
  Company Number: US-BIOGEN-2023BI01235767

PATIENT
  Sex: Female

DRUGS (2)
  1. PLEGRIDY [Suspect]
     Active Substance: PEGINTERFERON BETA-1A
     Indication: Multiple sclerosis
     Route: 050
     Dates: start: 20150604
  2. PLEGRIDY [Suspect]
     Active Substance: PEGINTERFERON BETA-1A

REACTIONS (7)
  - Product dose omission in error [Unknown]
  - Intentional dose omission [Unknown]
  - Product dose omission issue [Unknown]
  - Intentional product misuse [Unknown]
  - Multiple sclerosis [Unknown]
  - Pyrexia [Recovered/Resolved]
  - Pain [Recovered/Resolved]
